FAERS Safety Report 9148806 (Version 1)
Quarter: 2013Q1

REPORT INFORMATION
  Report Type: Other
  Country: US (occurrence: US)
  Receive Date: 20130308
  Receipt Date: 20130308
  Transmission Date: 20140127
  Serious: Yes (Other)
  Sender: FDA-Public Use
  Company Number: US-ENDO PHARMACEUTICALS INC.-GILD20130001

PATIENT
  Age: 41 Year
  Sex: Female
  Weight: 59.93 kg

DRUGS (1)
  1. GILDESS FE 1/20 [Suspect]
     Indication: ORAL CONTRACEPTION
     Dosage: 1/20
     Route: 048
     Dates: start: 20110725, end: 201108

REACTIONS (3)
  - Abortion spontaneous [Recovered/Resolved]
  - Pregnancy on oral contraceptive [Recovered/Resolved]
  - Drug ineffective [Recovered/Resolved]
